FAERS Safety Report 23448105 (Version 1)
Quarter: 2024Q1

REPORT INFORMATION
  Report Type: Report from Study
  Country: US (occurrence: US)
  Receive Date: 20240126
  Receipt Date: 20240126
  Transmission Date: 20240410
  Serious: Yes (Hospitalization, Other)
  Sender: FDA-Public Use
  Company Number: US-GILEAD-2024-0659568

PATIENT
  Sex: Female

DRUGS (1)
  1. AZTREONAM LYSINE [Suspect]
     Active Substance: AZTREONAM LYSINE
     Indication: Cystic fibrosis lung
     Dosage: INHALE 1 ML (75 MG TOTAL) VIA ALTERA NEBULIZER THREE TIMES DAILY. ALTERNATE 28 DAYS ON AND 28 DAYS O
     Route: 055

REACTIONS (1)
  - Cystic fibrosis [Unknown]
